FAERS Safety Report 14281514 (Version 2)
Quarter: 2018Q2

REPORT INFORMATION
  Report Type: Report from Study
  Country: US (occurrence: US)
  Receive Date: 20171213
  Receipt Date: 20180423
  Transmission Date: 20180711
  Serious: No
  Sender: FDA-Public Use
  Company Number: US-THERATECHNOLOGIES, INC.-TH-2017-00384

PATIENT

DRUGS (1)
  1. EGRIFTA [Suspect]
     Active Substance: TESAMORELIN
     Dosage: 1 MG MILLIGRAM(S), UNK
     Dates: start: 20171128

REACTIONS (5)
  - Injection site nodule [Unknown]
  - Injection site bruising [Unknown]
  - Waist circumference increased [Unknown]
  - Headache [Unknown]
  - Drug ineffective [Unknown]
